FAERS Safety Report 15803329 (Version 1)
Quarter: 2019Q1

REPORT INFORMATION
  Report Type: Spontaneous
  Country: CN (occurrence: CN)
  Receive Date: 20190109
  Receipt Date: 20190109
  Transmission Date: 20190417
  Serious: Yes (Other)
  Sender: FDA-Public Use
  Company Number: CN-PFIZER INC-2019002788

PATIENT
  Age: 51 Year
  Sex: Male

DRUGS (5)
  1. XUESHUANTONG [Suspect]
     Active Substance: HERBALS
     Indication: THROMBOSIS
     Dosage: 500 MG, 1X/DAY
     Route: 041
     Dates: start: 20180927, end: 20181007
  2. NORVASC [Suspect]
     Active Substance: AMLODIPINE BESYLATE
     Indication: HYPERTENSION
     Dosage: 5 MG, 1X/DAY
     Route: 048
     Dates: start: 20181005, end: 20181016
  3. PLAVIX [Suspect]
     Active Substance: CLOPIDOGREL BISULFATE
     Indication: PLATELET DISORDER
     Dosage: 75 MG, 1X/DAY
     Route: 048
     Dates: start: 20180927, end: 20181016
  4. CRESTOR [Suspect]
     Active Substance: ROSUVASTATIN CALCIUM
     Indication: ARTERIOSCLEROSIS
     Dosage: 10 MG, 1X/DAY
     Route: 048
     Dates: start: 20180927, end: 20181016
  5. BAYASPIRIN [Suspect]
     Active Substance: ASPIRIN
     Indication: PLATELET DISORDER
     Dosage: 100 MG, 1X/DAY
     Route: 048
     Dates: start: 20180927, end: 20181007

REACTIONS (2)
  - Acute generalised exanthematous pustulosis [Recovering/Resolving]
  - Drug eruption [Recovering/Resolving]

NARRATIVE: CASE EVENT DATE: 20181016
